FAERS Safety Report 24308077 (Version 1)
Quarter: 2024Q3

REPORT INFORMATION
  Report Type: Other
  Country: US (occurrence: US)
  Receive Date: 20240911
  Receipt Date: 20240911
  Transmission Date: 20241017
  Serious: Yes (Other)
  Sender: SIGMA TAU
  Company Number: US-LEADIANT BIOSCIENCES, INC.-2023STPI000425

PATIENT
  Sex: Male

DRUGS (1)
  1. MATULANE [Suspect]
     Active Substance: PROCARBAZINE HYDROCHLORIDE
     Indication: Diffuse large B-cell lymphoma
     Dosage: 50 MILLIGRAMS, 3 CAPSULES (150MG TOTAL) DAILY FOR 7 DAYS ON DAYS 2-8 FOR CYCLES 1, 3, 5, AND 7
     Route: 048
     Dates: start: 20230819

REACTIONS (4)
  - Seizure [Unknown]
  - Cachexia [Recovering/Resolving]
  - Inappropriate antidiuretic hormone secretion [Unknown]
  - Anaemia [Unknown]
